FAERS Safety Report 4879846-1 (Version None)
Quarter: 2006Q1

REPORT INFORMATION
  Report Type: 
  Country: None (occurrence: None)
  Receive Date: 20060113
  Receipt Date: 20051220
  Transmission Date: 20060701
  Serious: Yes (Other)
  Sender: FDA-Public Use
  Company Number: GB-GLAXOSMITHKLINE-B0405317A

PATIENT
  Sex: Female

DRUGS (3)
  1. NIQUITIN CQ PATCH, CLEAR [Suspect]
     Indication: SMOKING CESSATION THERAPY
     Dosage: 21MG PER DAY
     Route: 062
     Dates: start: 20051218, end: 20051219
  2. INSULIN [Concomitant]
     Route: 065
  3. NOVORAPID [Concomitant]
     Route: 065

REACTIONS (2)
  - HALLUCINATION [None]
  - HALLUCINATION, VISUAL [None]
